FAERS Safety Report 8917436 (Version 4)
Quarter: 2012Q4

REPORT INFORMATION
  Report Type: 
  Country: JP (occurrence: JP)
  Receive Date: 20121120
  Receipt Date: 20121129
  Transmission Date: 20130627
  Serious: Yes (Other)
  Sender: FDA-Public Use
  Company Number: JP-PFIZER INC-2012287254

PATIENT
  Age: 80 Year
  Sex: Male

DRUGS (7)
  1. CHAMPIX [Suspect]
     Indication: SMOKING CESSATION THERAPY
     Dosage: 2 mg, 1x/day
     Route: 048
     Dates: start: 20121016, end: 20121112
  2. AMLODIPINE BESILATE [Concomitant]
     Indication: HYPERTENSION
     Dosage: 2.5 mg, 1x/day
     Route: 048
  3. BEPRICOR [Concomitant]
     Dosage: 100 mg, 1x/day
     Route: 048
  4. BAYASPIRIN [Concomitant]
     Dosage: 100 mg, 1x/day
     Route: 048
  5. VOGLIBOSE [Concomitant]
     Indication: DIABETES MELLITUS
     Dosage: 0.2 mg, 1x/day
     Route: 048
  6. KREMEZIN [Concomitant]
     Dosage: UNK
  7. URIEF [Concomitant]
     Indication: URINATION IMPAIRED
     Dosage: 2 mg, 1x/day
     Route: 048

REACTIONS (4)
  - Renal impairment [Unknown]
  - Decreased appetite [Recovered/Resolved]
  - Nausea [Recovered/Resolved]
  - Weight decreased [Recovering/Resolving]
